FAERS Safety Report 8216779-7 (Version None)
Quarter: 2012Q1

REPORT INFORMATION
  Report Type: 
  Country: None (occurrence: None)
  Receive Date: 20120316
  Receipt Date: 20120307
  Transmission Date: 20120608
  Serious: Yes (Disabling, Other)
  Sender: FDA-Public Use
  Company Number: JP-FRI-1000028742

PATIENT
  Age: 79 Year
  Sex: Female
  Weight: 37 kg

DRUGS (10)
  1. MEMANTINE [Suspect]
     Dosage: 20 MG
     Route: 048
     Dates: start: 20120105, end: 20120211
  2. TIARYL [Concomitant]
     Indication: PSYCHIATRIC SYMPTOM
     Dosage: 75 MG
     Route: 048
  3. NEXIUM [Concomitant]
     Dosage: 20 MG
     Route: 048
  4. MEMANTINE [Suspect]
     Dosage: 15 MG
     Dates: start: 20111222, end: 20120104
  5. PROPIVERINE [Concomitant]
     Indication: POLLAKIURIA
     Dosage: 20 MG
     Route: 048
  6. MEMANTINE [Suspect]
     Indication: DEMENTIA ALZHEIMER'S TYPE
     Dosage: 5 MG
     Dates: start: 20111129, end: 20111207
  7. DEPAKENE [Concomitant]
     Dosage: 600 MG
     Route: 048
  8. MICARDIS [Concomitant]
     Indication: HYPERTENSION
     Dosage: 20 MG
     Route: 048
     Dates: start: 20110201
  9. MEMANTINE [Suspect]
     Dosage: 10 MG
     Dates: start: 20111208, end: 20111221
  10. KAMA [Concomitant]
     Indication: CONSTIPATION
     Dosage: 3 G
     Route: 048

REACTIONS (3)
  - TOOTH INJURY [None]
  - TRISMUS [None]
  - DYSKINESIA [None]
